FAERS Safety Report 11002777 (Version 3)
Quarter: 2015Q3

REPORT INFORMATION
  Report Type: Report from Study
  Country: IT (occurrence: IT)
  Receive Date: 20150408
  Receipt Date: 20150817
  Transmission Date: 20151125
  Serious: Yes (Hospitalization, Other)
  Sender: FDA-Public Use
  Company Number: IT-ABBVIE-15P-083-1359543-00

PATIENT
  Age: 86 Year
  Sex: Female
  Weight: 60 kg

DRUGS (4)
  1. SINEMET [Concomitant]
     Active Substance: CARBIDOPA\LEVODOPA
     Indication: PARKINSON^S DISEASE
     Route: 048
     Dates: start: 20100101, end: 20150327
  2. REMERON [Concomitant]
     Active Substance: MIRTAZAPINE
     Indication: DEPRESSION
     Route: 048
     Dates: start: 20100101
  3. DUODOPA [Suspect]
     Active Substance: CARBIDOPA\LEVODOPA
     Indication: PARKINSON^S DISEASE
     Dosage: 2.7 MI/H
     Route: 050
     Dates: start: 20090901, end: 20150327
  4. DUODOPA [Suspect]
     Active Substance: CARBIDOPA\LEVODOPA
     Dosage: 2.7 MI/H
     Route: 050

REACTIONS (4)
  - Device breakage [Recovered/Resolved]
  - Therapeutic response decreased [Recovered/Resolved]
  - Device dislocation [Recovered/Resolved]
  - Intestinal fistula [Unknown]

NARRATIVE: CASE EVENT DATE: 20150305
